FAERS Safety Report 8202925-8 (Version None)
Quarter: 2012Q1

REPORT INFORMATION
  Report Type: 
  Country: None (occurrence: None)
  Receive Date: 20120312
  Receipt Date: 20120302
  Transmission Date: 20120608
  Serious: Yes (Hospitalization)
  Sender: FDA-Public Use
  Company Number: US-ASTRAZENECA-2012SE14877

PATIENT
  Sex: Male

DRUGS (1)
  1. NEXIUM [Suspect]
     Indication: GASTRIC DISORDER
     Route: 048

REACTIONS (6)
  - GASTRIC DISORDER [None]
  - ATRIAL FIBRILLATION [None]
  - DRUG INEFFECTIVE FOR UNAPPROVED INDICATION [None]
  - GASTROINTESTINAL INFLAMMATION [None]
  - VOMITING [None]
  - IRRITABLE BOWEL SYNDROME [None]
